FAERS Safety Report 9350551 (Version 5)
Quarter: 2014Q2

REPORT INFORMATION
  Report Type: Spontaneous
  Country: US (occurrence: US)
  Receive Date: 20130617
  Receipt Date: 20140610
  Transmission Date: 20141212
  Serious: No
  Sender: FDA-Public Use
  Company Number: US-PFIZER INC-2013181171

PATIENT
  Age: 62 Year
  Sex: Female
  Weight: 52.15 kg

DRUGS (6)
  1. LYRICA [Suspect]
     Indication: FIBROMYALGIA
     Dosage: 100 MG, 2X/DAY
     Dates: start: 201302
  2. LYRICA [Suspect]
     Dosage: 75 MG, 2X/DAY
     Route: 048
     Dates: start: 201305, end: 201306
  3. LYRICA [Suspect]
     Dosage: 75 MG
  4. LYRICA [Suspect]
     Dosage: 75 MG
  5. LISINOPRIL [Concomitant]
     Indication: HYPERTENSION
     Dosage: 20 MG, DAILY
  6. NUVIGIL [Concomitant]
     Indication: CHRONIC FATIGUE SYNDROME
     Dosage: 250 MG, DAILY

REACTIONS (2)
  - Pain [Unknown]
  - Drug withdrawal syndrome [Recovered/Resolved]
